FAERS Safety Report 7729774-9 (Version None)
Quarter: 2011Q3

REPORT INFORMATION
  Report Type: 
  Country: None (occurrence: None)
  Receive Date: 20110901
  Receipt Date: 20110901
  Transmission Date: 20111222
  Serious: No
  Sender: FDA-Public Use
  Company Number: None

PATIENT
  Age: 67 Year
  Sex: Female
  Weight: 53.5244 kg

DRUGS (1)
  1. TERBINAFINE HCL [Suspect]
     Indication: ADVERSE REACTION
     Dosage: 1 TABLET 1 X DAY BY MOUTH
     Route: 048
     Dates: start: 20110503, end: 20110807

REACTIONS (3)
  - DYSGEUSIA [None]
  - AGEUSIA [None]
  - WEIGHT DECREASED [None]
